FAERS Safety Report 5081807-7 (Version None)
Quarter: 2006Q3

REPORT INFORMATION
  Report Type: 
  Country: None (occurrence: None)
  Receive Date: 20060811
  Receipt Date: 20060726
  Transmission Date: 20061208
  Serious: Yes (Other)
  Sender: FDA-Public Use
  Company Number: BR-2006-021055

PATIENT
  Age: 37 Year
  Sex: Female

DRUGS (2)
  1. BETAFERON (INTERFERON BETA - 1B) INJECTION, 250UG [Suspect]
     Indication: MULTIPLE SCLEROSIS
     Dosage: 8 MIU, SUBCUTANEOUS
     Route: 058
     Dates: start: 20000101, end: 20060421
  2. CORTICOSTEROIDS [Concomitant]

REACTIONS (2)
  - HEPATITIS A [None]
  - LIVER DISORDER [None]
